FAERS Safety Report 9350294 (Version 1)
Quarter: 2013Q2

REPORT INFORMATION
  Report Type: Report from Study
  Country: DE (occurrence: DE)
  Receive Date: 20130617
  Receipt Date: 20130617
  Transmission Date: 20140414
  Serious: Yes (Other)
  Sender: FDA-Public Use
  Company Number: DE-ROCHE-1235476

PATIENT
  Age: 39 Year
  Sex: Male

DRUGS (1)
  1. TOCILIZUMAB [Suspect]
     Indication: RHEUMATOID ARTHRITIS
     Route: 065
     Dates: start: 20120116

REACTIONS (2)
  - Nephrolithiasis [Recovered/Resolved]
  - Renal colic [Recovered/Resolved]
